FAERS Safety Report 7243282-3 (Version None)
Quarter: 2010Q4

REPORT INFORMATION
  Report Type: 
  Country: None (occurrence: None)
  Receive Date: 20101130
  Receipt Date: 20100715
  Transmission Date: 20110411
  Serious: Yes (Hospitalization)
  Sender: FDA-Public Use
  Company Number: 2010SP039183

PATIENT
  Age: 40 Year
  Sex: Female

DRUGS (6)
  1. NUVARING [Suspect]
     Indication: MIGRAINE
     Dosage: VAG
     Route: 067
  2. VICODIN [Concomitant]
  3. ADDERALL 10 [Concomitant]
  4. AMBIEN [Concomitant]
  5. PHENERGAN [Concomitant]
  6. LEXAPRO [Concomitant]

REACTIONS (2)
  - MIGRAINE [None]
  - THERAPEUTIC RESPONSE UNEXPECTED [None]
